FAERS Safety Report 6821259-7 (Version None)
Quarter: 2010Q2

REPORT INFORMATION
  Report Type: 
  Country: None (occurrence: None)
  Receive Date: 20100630
  Receipt Date: 20100618
  Transmission Date: 20101027
  Serious: Yes (Hospitalization)
  Sender: FDA-Public Use
  Company Number: 014103

PATIENT
  Sex: Female
  Weight: 115 kg

DRUGS (5)
  1. CERTOLIZUMAB PEGOL (CERTOLIZUMAB PEGOL) [Suspect]
     Indication: RHEUMATOID ARTHRITIS
     Dosage: (SUBCUTANEOUS)
     Route: 058
     Dates: start: 20100329, end: 20100604
  2. METHOTREXATE [Concomitant]
  3. PREDNISOLONE [Concomitant]
  4. PANTOZOL /01263202/ [Concomitant]
  5. SALAGEN [Concomitant]

REACTIONS (1)
  - UTERINE CANCER [None]
